FAERS Safety Report 5057928-1 (Version None)
Quarter: 2006Q3

REPORT INFORMATION
  Report Type: 
  Country: None (occurrence: None)
  Receive Date: 20060721
  Receipt Date: 20060405
  Transmission Date: 20061208
  Serious: No
  Sender: FDA-Public Use
  Company Number: US-GLAXOSMITHKLINE-A0600562A

PATIENT
  Age: 54 Year
  Sex: Female

DRUGS (12)
  1. AVANDIA [Suspect]
     Dosage: 2MG THREE TIMES PER DAY
     Route: 048
     Dates: start: 20050101
  2. METFORMIN [Suspect]
     Route: 048
  3. ASPIRIN [Concomitant]
  4. PLAVIX [Concomitant]
  5. EFFEXOR [Concomitant]
  6. UNKNOWN MEDICATION [Concomitant]
  7. ZETIA [Concomitant]
  8. IMDUR [Concomitant]
  9. TOPROL-XL [Concomitant]
  10. LISINOPRIL [Concomitant]
  11. GLYCOSIDE [Concomitant]
  12. VICODIN [Concomitant]

REACTIONS (1)
  - BLOOD GLUCOSE INCREASED [None]
